FAERS Safety Report 25170078 (Version 2)
Quarter: 2025Q2

REPORT INFORMATION
  Report Type: Spontaneous
  Country: US (occurrence: US)
  Receive Date: 20250407
  Receipt Date: 20250421
  Transmission Date: 20250716
  Serious: No
  Sender: BIOGEN
  Company Number: US-BIOGEN-2025BI01306240

PATIENT
  Age: 22 Year
  Sex: Male

DRUGS (1)
  1. SPINRAZA [Suspect]
     Active Substance: NUSINERSEN
     Indication: Spinal muscular atrophy
     Route: 050

REACTIONS (1)
  - Vomiting [Recovered/Resolved]

NARRATIVE: CASE EVENT DATE: 20250327
